FAERS Safety Report 19977915 (Version 1)
Quarter: 2021Q4

REPORT INFORMATION
  Report Type: Spontaneous
  Country: US (occurrence: US)
  Receive Date: 20211020
  Receipt Date: 20211020
  Transmission Date: 20220303
  Serious: No
  Sender: FDA-Public Use
  Company Number: None

PATIENT
  Age: 58 Year
  Sex: Male
  Weight: 69.75 kg

DRUGS (9)
  1. UP AND UP NASAL [Suspect]
     Active Substance: OXYMETAZOLINE HYDROCHLORIDE
     Indication: Sinusitis
     Dosage: ?QUANTITY:1 SPRAY(S);?OTHER ROUTE:NASAL SPRAY
     Route: 045
  2. MELATONIN [Concomitant]
     Active Substance: MELATONIN
  3. DIPHENHYDRAMINE [Concomitant]
     Active Substance: DIPHENHYDRAMINE
  4. ASPIRIN [Concomitant]
     Active Substance: ASPIRIN
  5. HYPERICUM PERFORATUM WHOLE [Concomitant]
     Active Substance: HYPERICUM PERFORATUM WHOLE
  6. IBUPROFEN [Concomitant]
     Active Substance: IBUPROFEN
  7. VITAMIN B COMPLEX [Concomitant]
     Active Substance: CYANOCOBALAMIN\DEXPANTHENOL\NIACINAMIDE\PYRIDOXINE HYDROCHLORIDE\RIBOFLAVIN 5^-PHOSPHATE SODIUM\THIA
  8. VITAMIN D3 [Concomitant]
     Active Substance: CHOLECALCIFEROL
  9. MINERALS [Concomitant]
     Active Substance: MINERALS

REACTIONS (6)
  - Product quality issue [None]
  - Product physical consistency issue [None]
  - Sinus headache [None]
  - Condition aggravated [None]
  - Product container issue [None]
  - Product contamination [None]

NARRATIVE: CASE EVENT DATE: 20211016
